FAERS Safety Report 19762052 (Version 1)
Quarter: 2021Q3

REPORT INFORMATION
  Report Type: Spontaneous
  Country: US (occurrence: US)
  Receive Date: 20210827
  Receipt Date: 20210827
  Transmission Date: 20211014
  Serious: Yes (Hospitalization, Other)
  Sender: FDA-Public Use
  Company Number: US-COVIS PHARMA GMBH-2021COV23724

PATIENT
  Age: 20 Year
  Sex: Female

DRUGS (1)
  1. FERAHEME [Suspect]
     Active Substance: FERUMOXYTOL NON-STOICHIOMETRIC MAGNETITE
     Indication: ANAEMIA
     Route: 042
     Dates: start: 20210816, end: 20210816

REACTIONS (5)
  - Oxygen saturation decreased [Recovered/Resolved]
  - Migraine [Not Recovered/Not Resolved]
  - Anaphylactic reaction [Recovered/Resolved]
  - Haemoglobin decreased [Unknown]
  - Dyspnoea [Recovered/Resolved]

NARRATIVE: CASE EVENT DATE: 202108
